FAERS Safety Report 5722245-0 (Version None)
Quarter: 2008Q2

REPORT INFORMATION
  Report Type: 
  Country: None (occurrence: None)
  Receive Date: 20080424
  Receipt Date: 20080416
  Transmission Date: 20081010
  Serious: Yes (Hospitalization)
  Sender: FDA-Public Use
  Company Number: SPV1-2008-00706

PATIENT
  Age: 43 Year
  Sex: Male
  Weight: 45.4 kg

DRUGS (12)
  1. ELAPRASE [Suspect]
     Dosage: 23 MG, 1X/WEEK, IV DRIP
     Route: 041
     Dates: start: 20070614, end: 20080326
  2. VERAPAMIL [Concomitant]
  3. FAMOTIDINE [Concomitant]
  4. ASPIRIN [Concomitant]
  5. DIGOXIN [Concomitant]
  6. TORSEMIDE [Concomitant]
  7. PIMOBENDAN (PIMOBENDAN) [Concomitant]
  8. LEVOTHYROXINE SODIUM [Concomitant]
  9. HYDROCORTISONE [Concomitant]
  10. FUROSEMIDE [Concomitant]
  11. METILDIGOXIN (METILDIGOXIN) [Concomitant]
  12. LORAZEPAM [Concomitant]

REACTIONS (1)
  - CARDIAC FAILURE CONGESTIVE [None]
